FAERS Safety Report 9257338 (Version 2)
Quarter: 2014Q1

REPORT INFORMATION
  Report Type: Spontaneous
  Country: US (occurrence: US)
  Receive Date: 20130426
  Receipt Date: 20140210
  Transmission Date: 20141002
  Serious: Yes (Hospitalization, Other)
  Sender: FDA-Public Use
  Company Number: US-BAYER-2013-051264

PATIENT
  Age: 23 Year
  Sex: Female
  Weight: 122 kg

DRUGS (7)
  1. YAZ [Suspect]
  2. YASMIN [Suspect]
  3. CYMBALTA [Concomitant]
  4. METOPROLOL [Concomitant]
  5. HYDROCHLOROTHIAZIDE [Concomitant]
  6. LISINOPRIL [Concomitant]
  7. ZOCOR [Concomitant]

REACTIONS (3)
  - Cerebrovascular accident [None]
  - Deep vein thrombosis [None]
  - Cerebral infarction [None]
